FAERS Safety Report 24788154 (Version 1)
Quarter: 2024Q4

REPORT INFORMATION
  Report Type: Spontaneous
  Country: US (occurrence: US)
  Receive Date: 20241230
  Receipt Date: 20241230
  Transmission Date: 20250115
  Serious: Yes (Hospitalization)
  Sender: ABBVIE
  Company Number: None

PATIENT

DRUGS (3)
  1. ESCITALOPRAM [Suspect]
     Active Substance: ESCITALOPRAM OXALATE
     Indication: Depression
     Dosage: TWO MONTH PRIOR
     Route: 065
  2. DESMOPRESSIN [Suspect]
     Active Substance: DESMOPRESSIN
     Indication: Diabetes insipidus
     Dosage: WITH FEW DOSE CHANGES
     Route: 045
     Dates: start: 2007
  3. DESMOPRESSIN [Suspect]
     Active Substance: DESMOPRESSIN
     Indication: Diabetes insipidus
     Dosage: FOUR 10MCG SPRAYS IN EACH NOSTRIL THREE TIMES DAILY
     Route: 045
     Dates: start: 2020

REACTIONS (2)
  - Hyponatraemia [Recovered/Resolved]
  - Polyuria [Recovering/Resolving]
